FAERS Safety Report 21461995 (Version 1)
Quarter: 2022Q4

REPORT INFORMATION
  Report Type: Spontaneous
  Country: US (occurrence: US)
  Receive Date: 20221015
  Receipt Date: 20221015
  Transmission Date: 20230113
  Serious: No
  Sender: FDA-Public Use
  Company Number: US-UNITED THERAPEUTICS-UNT-2022-023381

PATIENT
  Sex: Female
  Weight: 95.692 kg

DRUGS (7)
  1. REMODULIN [Suspect]
     Active Substance: TREPROSTINIL
     Indication: Pulmonary arterial hypertension
     Dosage: UNK, CONTINUING
     Route: 058
     Dates: start: 20220921
  2. REMODULIN [Suspect]
     Active Substance: TREPROSTINIL
     Dosage: 0.0105 ?G/KG, CONTINUING
     Route: 058
     Dates: start: 2022
  3. REMODULIN [Suspect]
     Active Substance: TREPROSTINIL
     Indication: Pulmonary arterial hypertension
     Dosage: UNK, CONTINUING
     Route: 058
     Dates: start: 20220921
  4. REMODULIN [Suspect]
     Active Substance: TREPROSTINIL
     Dosage: 0.0105 ?G/KG, CONTINUING
     Route: 058
     Dates: start: 2022
  5. XARELTO [Concomitant]
     Active Substance: RIVAROXABAN
     Indication: Product used for unknown indication
     Dosage: UNK
     Route: 065
  6. AMBRISENTAN [Concomitant]
     Active Substance: AMBRISENTAN
     Indication: Product used for unknown indication
     Dosage: UNK
     Route: 065
  7. ADEMPAS [Concomitant]
     Active Substance: RIOCIGUAT
     Indication: Product used for unknown indication
     Dosage: UNK
     Route: 065

REACTIONS (16)
  - Device infusion issue [Recovered/Resolved]
  - Device infusion issue [Recovered/Resolved]
  - Device infusion issue [Recovered/Resolved]
  - Device physical property issue [Recovered/Resolved]
  - Device difficult to use [Recovered/Resolved]
  - Device leakage [Recovered/Resolved]
  - Device failure [Unknown]
  - Product label confusion [Unknown]
  - Device delivery system issue [Unknown]
  - Device power source issue [Unknown]
  - Device information output issue [Unknown]
  - Device defective [Unknown]
  - Device alarm issue [Unknown]
  - Device delivery system issue [Unknown]
  - Device leakage [Unknown]
  - Infusion site discomfort [Unknown]

NARRATIVE: CASE EVENT DATE: 20220101
